FAERS Safety Report 17559277 (Version 2)
Quarter: 2020Q2

REPORT INFORMATION
  Report Type: Spontaneous
  Country: US (occurrence: US)
  Receive Date: 20200319
  Receipt Date: 20200403
  Transmission Date: 20200713
  Serious: Yes (Other)
  Sender: FDA-Public Use
  Company Number: US-GW PHARMA-202003USGW01008

PATIENT

DRUGS (6)
  1. EPIDIOLEX [Suspect]
     Active Substance: CANNABIDIOL
     Dosage: 320 MILLIGRAM, BID
  2. EPIDIOLEX [Suspect]
     Active Substance: CANNABIDIOL
     Dosage: UNSURE THAT PATIENT GOT WHOLE DOSE
     Dates: start: 2019
  3. EPIDIOLEX [Suspect]
     Active Substance: CANNABIDIOL
     Dosage: UNSURE THAT PATIENT GOT WHOLE DOSE (MORE SLOWLY)
     Route: 048
  4. EPIDIOLEX [Suspect]
     Active Substance: CANNABIDIOL
     Indication: EPILEPSY
     Dosage: 320 MILLIGRAM, BID
     Dates: start: 2019
  5. EPIDIOLEX [Suspect]
     Active Substance: CANNABIDIOL
     Dosage: 320 MILLIGRAM, BID (MORE SLOWLY)
     Route: 048
  6. EPIDIOLEX [Suspect]
     Active Substance: CANNABIDIOL
     Dosage: UNSURE THAT PATIENT GOT WHOLE DOSE

REACTIONS (10)
  - Cough [Recovered/Resolved]
  - Aspiration [Recovered/Resolved]
  - Dyspnoea [Recovered/Resolved]
  - Incorrect route of product administration [Not Recovered/Not Resolved]
  - Dysphagia [Recovered/Resolved]
  - Device issue [Unknown]
  - Product residue present [Unknown]
  - Incorrect dose administered [Unknown]
  - Pneumonia bacterial [Recovered/Resolved]
  - Choking [Recovered/Resolved]

NARRATIVE: CASE EVENT DATE: 2019
